FAERS Safety Report 10173279 (Version 1)
Quarter: 2014Q2

REPORT INFORMATION
  Report Type: Spontaneous
  Country: CN (occurrence: CN)
  Receive Date: 20140515
  Receipt Date: 20140515
  Transmission Date: 20141212
  Serious: Yes (Other)
  Sender: FDA-Public Use
  Company Number: CN-BAXTER-2014BAX023354

PATIENT
  Age: 46 Year
  Sex: Female
  Weight: 59 kg

DRUGS (2)
  1. 0.9% SODIUM CHLORIDE INJECTION [Suspect]
     Indication: MEDICATION DILUTION
     Route: 041
     Dates: start: 20131204, end: 20131204
  2. CEFODIZIME DISODIUM [Suspect]
     Indication: INFECTION PROPHYLAXIS
     Route: 041
     Dates: start: 20131204, end: 20131204

REACTIONS (1)
  - Rash [Recovered/Resolved]
